FAERS Safety Report 20717762 (Version 1)
Quarter: 2022Q2

REPORT INFORMATION
  Report Type: Spontaneous
  Country: CN (occurrence: CN)
  Receive Date: 20220417
  Receipt Date: 20220417
  Transmission Date: 20220720
  Serious: Yes (Other)
  Sender: FDA-Public Use
  Company Number: CN-BAXTER-2022BAX008455

PATIENT
  Age: 55 Year
  Sex: Female
  Weight: 50 kg

DRUGS (8)
  1. CYCLOPHOSPHAMIDE [Suspect]
     Active Substance: CYCLOPHOSPHAMIDE
     Indication: HER2 positive breast cancer
     Dosage: CYCLOPHOSPHAMIDE FOR INJECTION 0.85G + 0.9% SODIUM CHLORIDE INJECTION 100ML IVGTT AT ONCE
     Route: 041
     Dates: start: 20220311, end: 20220311
  2. CYCLOPHOSPHAMIDE [Suspect]
     Active Substance: CYCLOPHOSPHAMIDE
     Indication: Invasive ductal breast carcinoma
  3. CYCLOPHOSPHAMIDE [Suspect]
     Active Substance: CYCLOPHOSPHAMIDE
     Indication: Breast cancer stage III
  4. DEXTROSE [Suspect]
     Active Substance: DEXTROSE
     Indication: Medication dilution
     Dosage: PIRARUBICIN HYDROCHLORIDE FOR INJECTION 70 MG + 5% GLUCOSE INJECTION 250ML IVGTT AT ONCE
     Route: 041
  5. SODIUM CHLORIDE [Suspect]
     Active Substance: SODIUM CHLORIDE
     Indication: Medication dilution
     Dosage: CYCLOPHOSPHAMIDE FOR INJECTION 0.85G + 0.9% SODIUM CHLORIDE INJECTION 100ML IVGTT AT ONCE
     Route: 041
     Dates: start: 20220311, end: 20220311
  6. PIRARUBICIN HYDROCHLORIDE [Suspect]
     Active Substance: PIRARUBICIN HYDROCHLORIDE
     Indication: HER2 positive breast cancer
     Dosage: PIRARUBICIN HYDROCHLORIDE FOR INJECTION 70 MG + 5% GLUCOSE INJECTION 250ML IVGTT AT ONCE
     Route: 041
     Dates: start: 20220311, end: 20220311
  7. PIRARUBICIN HYDROCHLORIDE [Suspect]
     Active Substance: PIRARUBICIN HYDROCHLORIDE
     Indication: Invasive ductal breast carcinoma
  8. PIRARUBICIN HYDROCHLORIDE [Suspect]
     Active Substance: PIRARUBICIN HYDROCHLORIDE
     Indication: Breast cancer stage III

REACTIONS (2)
  - White blood cell count decreased [Recovering/Resolving]
  - Neutrophil count decreased [Recovering/Resolving]

NARRATIVE: CASE EVENT DATE: 20220402
